FAERS Safety Report 9289067 (Version 1)
Quarter: 2013Q2

REPORT INFORMATION
  Report Type: Spontaneous
  Country: US (occurrence: None)
  Receive Date: 20130509
  Receipt Date: 20130509
  Transmission Date: 20140414
  Serious: Yes (Other)
  Sender: FDA-Public Use
  Company Number: CLCY20130092

PATIENT
  Sex: Female

DRUGS (1)
  1. COLCRYS [Suspect]
     Indication: GOUT
     Route: 048

REACTIONS (1)
  - Gastrointestinal haemorrhage [None]
